FAERS Safety Report 19091864 (Version 1)
Quarter: 2021Q2

REPORT INFORMATION
  Report Type: Spontaneous
  Country: JP (occurrence: JP)
  Receive Date: 20210405
  Receipt Date: 20210405
  Transmission Date: 20210717
  Serious: Yes (Other)
  Sender: FDA-Public Use
  Company Number: JP-PFIZER INC-2021320463

PATIENT
  Age: 8 Decade
  Sex: Male

DRUGS (2)
  1. BAVENCIO [Suspect]
     Active Substance: AVELUMAB
  2. INLYTA [Suspect]
     Active Substance: AXITINIB

REACTIONS (2)
  - Interstitial lung disease [Unknown]
  - Liver disorder [Unknown]
